FAERS Safety Report 4525572-8 (Version None)
Quarter: 2004Q4

REPORT INFORMATION
  Report Type: 
  Country: None (occurrence: None)
  Receive Date: 20041213
  Receipt Date: 20041213
  Transmission Date: 20050328
  Serious: No
  Sender: FDA-Public Use
  Company Number: None

PATIENT
  Age: 47 Year
  Sex: Female

DRUGS (1)
  1. NITROGLYCERIN 0.2% OINTMENT [Suspect]
     Dosage: TOPICAL
     Route: 061

REACTIONS (1)
  - MEDICATION ERROR [None]
